APPROVED DRUG PRODUCT: PROMETHAZINE HYDROCHLORIDE PLAIN
Active Ingredient: PROMETHAZINE HYDROCHLORIDE
Strength: 25MG/5ML **Federal Register determination that product was not discontinued or withdrawn for safety or effectiveness reasons**
Dosage Form/Route: SYRUP;ORAL
Application: N008381 | Product #003
Applicant: ANI PHARMACEUTICALS INC
Approved: Approved Prior to Jan 1, 1982 | RLD: Yes | RS: No | Type: DISCN